FAERS Safety Report 9614862 (Version 1)
Quarter: 2013Q4

REPORT INFORMATION
  Report Type: Spontaneous
  Country: US (occurrence: US)
  Receive Date: 20131011
  Receipt Date: 20131011
  Transmission Date: 20140711
  Serious: No
  Sender: FDA-Public Use
  Company Number: US-PFIZER INC-2013291918

PATIENT
  Age: 38 Year
  Sex: Male

DRUGS (6)
  1. EFFEXOR [Suspect]
     Dosage: UNK
  2. ABILIFY [Suspect]
     Dosage: UNK
  3. DARVOCET [Suspect]
     Dosage: UNK
  4. DEPAKOTE [Suspect]
     Dosage: UNK
  5. TAGAMET HB [Suspect]
     Dosage: UNK
  6. IMPERIM [Suspect]
     Dosage: UNK

REACTIONS (1)
  - Drug hypersensitivity [Unknown]
